FAERS Safety Report 21355620 (Version 1)
Quarter: 2022Q3

REPORT INFORMATION
  Report Type: Spontaneous
  Country: US (occurrence: None)
  Receive Date: 20220919
  Receipt Date: 20220919
  Transmission Date: 20221027
  Serious: Yes (Hospitalization)
  Sender: FDA-Public Use
  Company Number: None

PATIENT
  Age: 51 Year
  Sex: Female

DRUGS (2)
  1. CAPECITABINE [Suspect]
     Active Substance: CAPECITABINE
     Indication: Breast cancer
     Dosage: 1000 MG ORAL?DOSING TAKE 2 TABLETS BY MOUTH 2 TIMES DAILY FOR 14 DAYS, THEN 7 DAYS OFF EVERY 21 DAYS
     Route: 048
     Dates: start: 202202
  2. CAPECITABINE [Suspect]
     Active Substance: CAPECITABINE
     Indication: Bone cancer

REACTIONS (1)
  - Blood pressure abnormal [None]

NARRATIVE: CASE EVENT DATE: 20220916
